FAERS Safety Report 9714120 (Version 1)
Quarter: 2013Q4

REPORT INFORMATION
  Report Type: Spontaneous
  Country: US (occurrence: US)
  Receive Date: 20131126
  Receipt Date: 20131126
  Transmission Date: 20140711
  Serious: No
  Sender: FDA-Public Use
  Company Number: US-GILEAD-2008-0018945

PATIENT
  Sex: Female
  Weight: 57.61 kg

DRUGS (9)
  1. LETAIRIS [Suspect]
     Indication: PULMONARY ARTERIAL HYPERTENSION
     Route: 048
     Dates: start: 20081024
  2. REVATIO [Concomitant]
  3. COUMADIN [Concomitant]
  4. LASIX [Concomitant]
  5. LANOXIN [Concomitant]
  6. L-ARGININE [Concomitant]
  7. POTASSIUM CHLORIDE [Concomitant]
  8. MAGNESIUM [Concomitant]
  9. ONE A DAY VITAMIN [Concomitant]

REACTIONS (3)
  - Erythema [None]
  - Swelling [None]
  - Tongue discolouration [None]
